FAERS Safety Report 5969290-8 (Version None)
Quarter: 2008Q4

REPORT INFORMATION
  Report Type: 
  Country: None (occurrence: None)
  Receive Date: 20081126
  Receipt Date: 20081121
  Transmission Date: 20090506
  Serious: Yes (Hospitalization, Other)
  Sender: FDA-Public Use
  Company Number: US-B.I. PHARMACEUTICALS,INC./RIDGEFIELD-2008-BP-17718BP

PATIENT
  Sex: Female

DRUGS (14)
  1. DULCOLAX [Suspect]
     Indication: CONSTIPATION
     Route: 048
  2. NOVOLOG [Concomitant]
     Indication: DIABETES MELLITUS
  3. LANTUS [Concomitant]
     Indication: DIABETES MELLITUS
  4. PLAVIX [Concomitant]
  5. ZOCOR [Concomitant]
  6. TOPROL-XL [Concomitant]
     Dosage: 150MG
  7. LISINOPRIL [Concomitant]
  8. REGLAN [Concomitant]
  9. MULTI-VITAMIN [Concomitant]
  10. DILANID [Concomitant]
     Indication: IMPAIRED GASTRIC EMPTYING
  11. SOMA [Concomitant]
     Indication: IMPAIRED GASTRIC EMPTYING
  12. TIZANIDINE HCL [Concomitant]
  13. TRAZODONE HCL [Concomitant]
  14. CLONAZEPAM [Concomitant]

REACTIONS (5)
  - ABDOMINAL PAIN UPPER [None]
  - CONVULSION [None]
  - DRUG INEFFECTIVE [None]
  - MYOCARDIAL INFARCTION [None]
  - URINARY TRACT INFECTION [None]
